FAERS Safety Report 21927355 (Version 1)
Quarter: 2023Q1

REPORT INFORMATION
  Report Type: Spontaneous
  Country: US (occurrence: US)
  Receive Date: 20230130
  Receipt Date: 20230130
  Transmission Date: 20230417
  Serious: No
  Sender: FDA-Public Use
  Company Number: US-BoehringerIngelheim-2023-BI-215485

PATIENT
  Sex: Female

DRUGS (2)
  1. COMBIVENT RESPIMAT [Suspect]
     Active Substance: ALBUTEROL SULFATE\IPRATROPIUM BROMIDE
     Indication: Emphysema
     Dosage: 1-4 TIMES PER DAY AS NEEDED
  2. Albuterol Ipratropium Nebulizer [Concomitant]
     Indication: Product used for unknown indication
     Dosage: AS NEEDED

REACTIONS (1)
  - Intentional product use issue [Unknown]
